FAERS Safety Report 4922238-7 (Version None)
Quarter: 2006Q1

REPORT INFORMATION
  Report Type: 
  Country: None (occurrence: None)
  Receive Date: 20060224
  Receipt Date: 20041029
  Transmission Date: 20060701
  Serious: Yes (Hospitalization, Congenital Anomaly, Other)
  Sender: FDA-Public Use
  Company Number: US-MERCK-0411USA00157

PATIENT
  Age: 60 Year
  Sex: Male

DRUGS (26)
  1. VIOXX [Suspect]
     Route: 048
     Dates: start: 20010101
  2. CELEBREX [Concomitant]
     Route: 048
     Dates: start: 20000603
  3. CELEBREX [Concomitant]
     Route: 048
     Dates: start: 20030603
  4. WELLBUTRIN [Concomitant]
     Route: 048
     Dates: start: 20030809
  5. WELLBUTRIN [Concomitant]
     Route: 065
  6. HEPARIN [Concomitant]
     Route: 065
     Dates: start: 20030606
  7. NITROGLYCERIN [Concomitant]
     Route: 061
  8. NITROGLYCERIN [Concomitant]
     Route: 061
  9. ZITHROMAX [Concomitant]
     Indication: BRONCHITIS
     Route: 001
     Dates: start: 20030603
  10. ZITHROMAX [Concomitant]
     Route: 001
     Dates: start: 20030603
  11. VALIUM [Concomitant]
     Indication: SEDATION
     Route: 041
     Dates: start: 20030605
  12. VALIUM [Concomitant]
     Route: 041
     Dates: start: 20030605
  13. BENADRYL [Concomitant]
     Route: 041
     Dates: start: 20030605
  14. BACTRIM [Concomitant]
     Indication: BRONCHITIS
     Route: 048
     Dates: start: 20031118
  15. PREDNISONE [Concomitant]
     Indication: BRONCHITIS
     Route: 048
     Dates: start: 20031118
  16. PREDNISONE [Concomitant]
     Route: 048
     Dates: start: 20031118
  17. ZOCOR [Concomitant]
     Indication: METABOLIC SYNDROME
     Route: 048
     Dates: start: 20040101
  18. ZOCOR [Concomitant]
     Route: 048
     Dates: start: 20040101
  19. PREVACID [Concomitant]
     Route: 065
     Dates: start: 20010621
  20. PREVACID [Concomitant]
     Route: 065
     Dates: start: 20010621
  21. ALLEGRA [Concomitant]
     Route: 048
     Dates: start: 20020123
  22. ALLEGRA [Concomitant]
     Route: 048
     Dates: start: 20020123
  23. NICODERM CQ [Concomitant]
     Route: 065
     Dates: start: 20030904
  24. NICODERM CQ [Concomitant]
     Route: 065
     Dates: start: 20030904
  25. PROTONIX [Concomitant]
     Route: 048
     Dates: start: 20031001
  26. PROTONIX [Concomitant]
     Route: 048
     Dates: start: 20031001

REACTIONS (14)
  - ARTHRALGIA [None]
  - BRONCHITIS [None]
  - CEREBROVASCULAR ACCIDENT [None]
  - CONJUNCTIVAL IRRITATION [None]
  - CORONARY ARTERY DISEASE [None]
  - DIARRHOEA [None]
  - GASTROOESOPHAGEAL REFLUX DISEASE [None]
  - METABOLIC SYNDROME [None]
  - MUSCLE SPASMS [None]
  - MYALGIA [None]
  - MYOCARDIAL INFARCTION [None]
  - NAUSEA [None]
  - SINUSITIS [None]
  - VOMITING [None]
